FAERS Safety Report 18379651 (Version 1)
Quarter: 2020Q4

REPORT INFORMATION
  Report Type: Spontaneous
  Country: US (occurrence: US)
  Receive Date: 20201013
  Receipt Date: 20201013
  Transmission Date: 20210114
  Serious: No
  Sender: FDA-Public Use
  Company Number: US-PFIZER INC-2020388267

PATIENT
  Age: 76 Year
  Sex: Female

DRUGS (3)
  1. TIKOSYN [Suspect]
     Active Substance: DOFETILIDE
     Indication: CARDIAC FLUTTER
     Dosage: 500 MG, DAILY (4X 125MG)
  2. TIKOSYN [Suspect]
     Active Substance: DOFETILIDE
     Dosage: 250 MG, 2X/DAY (125MG 2 CAPSULES TWICE A DAY)
  3. TIKOSYN [Suspect]
     Active Substance: DOFETILIDE
     Indication: ATRIAL FIBRILLATION
     Dosage: 250 MG, 2X/DAY (TAKING 250MG Q (EVERY) 12H)

REACTIONS (8)
  - Insomnia [Not Recovered/Not Resolved]
  - Abdominal pain upper [Unknown]
  - Diarrhoea [Unknown]
  - Product prescribing issue [Unknown]
  - Illness [Unknown]
  - Back pain [Unknown]
  - Rash [Unknown]
  - Intentional product misuse [Unknown]

NARRATIVE: CASE EVENT DATE: 2020
